FAERS Safety Report 13166009 (Version 1)
Quarter: 2017Q1

REPORT INFORMATION
  Report Type: Report from Study
  Country: FR (occurrence: FR)
  Receive Date: 20170131
  Receipt Date: 20170131
  Transmission Date: 20170428
  Serious: Yes (Other)
  Sender: FDA-Public Use
  Company Number: FR-ROCHE-1883818

PATIENT
  Age: 57 Year
  Sex: Male

DRUGS (4)
  1. RITUXIMAB [Suspect]
     Active Substance: RITUXIMAB
     Dosage: 1000 MG OR 375 MG/M2 AS MAINTENANCE TREATMENT
     Route: 042
  2. MYCOPHENOLATE MOFETIL. [Suspect]
     Active Substance: MYCOPHENOLATE MOFETIL
     Indication: MYASTHENIA GRAVIS
     Route: 065
  3. RITUXIMAB [Suspect]
     Active Substance: RITUXIMAB
     Indication: MYASTHENIA GRAVIS
     Dosage: 1000 MG OR 375 MG/M2 AS INDUCTION TREATMENT
     Route: 042
  4. PREDNISONE. [Suspect]
     Active Substance: PREDNISONE
     Indication: MYASTHENIA GRAVIS
     Route: 065

REACTIONS (1)
  - Progressive multifocal leukoencephalopathy [Unknown]
